FAERS Safety Report 4618079-0 (Version None)
Quarter: 2005Q2

REPORT INFORMATION
  Report Type: 
  Country: None (occurrence: None)
  Receive Date: 20050316
  Receipt Date: 20050121
  Transmission Date: 20051028
  Serious: Yes (Other)
  Sender: FDA-Public Use
  Company Number: S05-USA-00333-01

PATIENT
  Age: 55 Year
  Sex: Female

DRUGS (4)
  1. LEXAPRO [Suspect]
     Indication: MAJOR DEPRESSION
     Dosage: 10 MG QD PO
     Route: 048
     Dates: start: 20050114
  2. XANAX [Concomitant]
  3. LEVOYXL (LEVOTHYROXINE SODIUM) [Concomitant]
  4. ESTRACE [Concomitant]

REACTIONS (1)
  - SUICIDAL IDEATION [None]
